FAERS Safety Report 11940012 (Version 1)
Quarter: 2016Q1

REPORT INFORMATION
  Report Type: Spontaneous
  Country: FR (occurrence: FR)
  Receive Date: 20160122
  Receipt Date: 20160122
  Transmission Date: 20160526
  Serious: Yes (Hospitalization)
  Sender: FDA-Public Use
  Company Number: FR-PFIZER INC-2016019528

PATIENT
  Age: 54 Year
  Sex: Female

DRUGS (7)
  1. AMLOR [Suspect]
     Active Substance: AMLODIPINE BESYLATE
     Dosage: 50 MG, SINGLE
     Route: 048
     Dates: start: 20150918, end: 20150918
  2. ALPRAZOLAM. [Suspect]
     Active Substance: ALPRAZOLAM
     Dosage: 2 MG, SINGLE
     Route: 048
     Dates: start: 20150918, end: 20150918
  3. HYDROCHLOROTHIAZIDE. [Suspect]
     Active Substance: HYDROCHLOROTHIAZIDE
     Dosage: 200 MG, SINGLE
     Route: 048
     Dates: start: 20150918, end: 20150918
  4. ZOLPIDEM [Suspect]
     Active Substance: ZOLPIDEM\ZOLPIDEM TARTRATE
     Dosage: 200 MG, SINGLE
     Route: 048
     Dates: start: 20150918, end: 20150918
  5. IRBESARTAN. [Suspect]
     Active Substance: IRBESARTAN
     Dosage: 2.4 MG, SINGLE
     Route: 048
     Dates: start: 20150918, end: 20150918
  6. MIANSERINE HCL PCH [Suspect]
     Active Substance: MIANSERIN HYDROCHLORIDE
     Dosage: 1.8 G, SINGLE
     Route: 048
     Dates: start: 20150918, end: 20150918
  7. LAMOTRIGINE. [Suspect]
     Active Substance: LAMOTRIGINE
     Dosage: 250 MG, SINGLE
     Route: 048
     Dates: start: 20150918, end: 20150918

REACTIONS (9)
  - Tachycardia [Recovered/Resolved]
  - Electrocardiogram QT prolonged [None]
  - Hypotension [Recovered/Resolved]
  - Hyperlactacidaemia [None]
  - Loss of consciousness [None]
  - Hypotonia [None]
  - Haemodynamic instability [Recovered/Resolved]
  - Poisoning deliberate [None]
  - Toxicity to various agents [Recovered/Resolved]

NARRATIVE: CASE EVENT DATE: 20150918
